FAERS Safety Report 25109698 (Version 1)
Quarter: 2025Q1

REPORT INFORMATION
  Report Type: Spontaneous
  Country: US (occurrence: US)
  Receive Date: 20250323
  Receipt Date: 20250323
  Transmission Date: 20250409
  Serious: No
  Sender: BAUSCH AND LOMB
  Company Number: US-BAUSCHBL-2025BNL003920

PATIENT
  Age: 63 Year
  Sex: Female

DRUGS (1)
  1. DORZOLAMIDE HYDROCHLORIDE [Suspect]
     Active Substance: DORZOLAMIDE HYDROCHLORIDE
     Indication: Glaucoma
     Dosage: STARTED .6 MONTHS AGO
     Route: 047
     Dates: start: 2024

REACTIONS (6)
  - Eye irritation [Unknown]
  - Product dose omission in error [Unknown]
  - Product quality issue [Unknown]
  - Product packaging quantity issue [Unknown]
  - Product use issue [Unknown]
  - Product complaint [Unknown]
